FAERS Safety Report 8713699 (Version 2)
Quarter: 2012Q4

REPORT INFORMATION
  Report Type: 
  Country: JP (occurrence: JP)
  Receive Date: 20120808
  Receipt Date: 20121107
  Transmission Date: 20130627
  Serious: No
  Sender: FDA-Public Use
  Company Number: JP-ELI_LILLY_AND_COMPANY-JP201207008587

PATIENT
  Sex: Female

DRUGS (2)
  1. ZYPREXA [Suspect]
     Dosage: 2.5 mg, each morning
     Route: 048
  2. ZYPREXA [Suspect]
     Dosage: 10 mg, qd
     Route: 048

REACTIONS (4)
  - Pulse abnormal [Unknown]
  - Anaemia [Unknown]
  - Dizziness postural [Unknown]
  - Malaise [Unknown]
